FAERS Safety Report 16212370 (Version 4)
Quarter: 2019Q2

REPORT INFORMATION
  Report Type: Spontaneous
  Country: US (occurrence: US)
  Receive Date: 20190418
  Receipt Date: 20190626
  Transmission Date: 20190711
  Serious: No
  Sender: FDA-Public Use
  Company Number: US-PFIZER INC-2018104564

PATIENT
  Age: 78 Year
  Sex: Female
  Weight: 108 kg

DRUGS (5)
  1. LYRICA [Suspect]
     Active Substance: PREGABALIN
     Indication: FIBROMYALGIA
     Dosage: 50 MG, 3X/DAY (3 PILLS TO EQUAL 150MG)
     Route: 048
  2. LYRICA [Suspect]
     Active Substance: PREGABALIN
     Indication: PAIN IN EXTREMITY
  3. LYRICA [Suspect]
     Active Substance: PREGABALIN
     Indication: NEUROPATHY PERIPHERAL
     Dosage: 100 MG, 3X/DAY
     Route: 048
  4. ENBREL [Concomitant]
     Active Substance: ETANERCEPT
     Dosage: 50 MG, WEEKLY
  5. LYRICA [Suspect]
     Active Substance: PREGABALIN
     Indication: RHEUMATOID ARTHRITIS
     Dosage: 150 MG, 3X/DAY

REACTIONS (6)
  - Therapeutic product effect incomplete [Unknown]
  - Hypoacusis [Unknown]
  - Intentional product use issue [Unknown]
  - Pain in extremity [Not Recovered/Not Resolved]
  - Body height decreased [Unknown]
  - Memory impairment [Unknown]
